FAERS Safety Report 6099564-4 (Version None)
Quarter: 2009Q1

REPORT INFORMATION
  Report Type: 
  Country: None (occurrence: None)
  Receive Date: 20090226
  Receipt Date: 20090212
  Transmission Date: 20090719
  Serious: Yes (Other)
  Sender: FDA-Public Use
  Company Number: 2009S1002788

PATIENT
  Age: 32 Year
  Sex: Female
  Weight: 45 kg

DRUGS (3)
  1. LORAZEPAM [Suspect]
     Indication: ACCIDENTAL EXPOSURE
     Dosage: DAILY; ORAL
     Route: 048
  2. PROMETHAZINE [Suspect]
     Indication: ACCIDENTAL EXPOSURE
     Dosage: DAILY; ORAL
     Route: 048
  3. OXCARBAZEPINE [Suspect]
     Indication: ACCIDENTAL EXPOSURE
     Dosage: DAILY; ORAL
     Route: 048

REACTIONS (1)
  - ACCIDENTAL EXPOSURE [None]
